FAERS Safety Report 4636714-8 (Version None)
Quarter: 2005Q2

REPORT INFORMATION
  Report Type: 
  Country: None (occurrence: None)
  Receive Date: 20050414
  Receipt Date: 20050406
  Transmission Date: 20051028
  Serious: Yes (Other)
  Sender: FDA-Public Use
  Company Number: 2005054374

PATIENT
  Age: 74 Year
  Sex: Female

DRUGS (4)
  1. LIPITOR [Suspect]
     Indication: ILL-DEFINED DISORDER
     Dosage: 10 MG (10 MG, 1 IN 1 D), ORAL
     Route: 048
     Dates: start: 19990209, end: 19990403
  2. ATENOLOL [Concomitant]
  3. METFORMIN HCL [Concomitant]
  4. INDAPAMIDE [Concomitant]

REACTIONS (3)
  - FLUSHING [None]
  - PARAESTHESIA [None]
  - VISION BLURRED [None]
